FAERS Safety Report 23716348 (Version 1)
Quarter: 2024Q2

REPORT INFORMATION
  Report Type: Spontaneous
  Country: US (occurrence: US)
  Receive Date: 20240408
  Receipt Date: 20240408
  Transmission Date: 20240715
  Serious: No
  Sender: FDA-Public Use
  Company Number: US-UCBSA-2023058749

PATIENT
  Age: 77 Year
  Sex: Female

DRUGS (5)
  1. BRIVARACETAM [Suspect]
     Active Substance: BRIVARACETAM
     Indication: Status epilepticus
     Dosage: 400 MILLIGRAM
  2. BRIVARACETAM [Suspect]
     Active Substance: BRIVARACETAM
     Indication: Off label use
  3. MIDAZOLAM HYDROCHLORIDE [Concomitant]
     Active Substance: MIDAZOLAM HYDROCHLORIDE
     Indication: Status epilepticus
     Dosage: 2 MILLIGRAM
     Route: 042
  4. MIDAZOLAM HYDROCHLORIDE [Concomitant]
     Active Substance: MIDAZOLAM HYDROCHLORIDE
     Dosage: 4 MILLIGRAM
     Route: 042
  5. PROPOFOL [Concomitant]
     Active Substance: PROPOFOL
     Indication: Sedation
     Dosage: UNK

REACTIONS (1)
  - No adverse event [Unknown]
